FAERS Safety Report 17335694 (Version 1)
Quarter: 2020Q1

REPORT INFORMATION
  Report Type: Spontaneous
  Country: GB (occurrence: GB)
  Receive Date: 20200128
  Receipt Date: 20200128
  Transmission Date: 20200409
  Serious: Yes (Hospitalization)
  Sender: FDA-Public Use
  Company Number: GB-ACTELION-A-NJ2020-201185

PATIENT
  Age: 35 Year
  Sex: Female

DRUGS (3)
  1. ILOPROST. [Suspect]
     Active Substance: ILOPROST
     Indication: PULMONARY HYPERTENSION
     Dosage: 5 MCG 7D AS DIRECTED
     Route: 055
  2. OPSUMIT [Concomitant]
     Active Substance: MACITENTAN
  3. SILDENAFIL. [Concomitant]
     Active Substance: SILDENAFIL

REACTIONS (4)
  - Cough [Unknown]
  - Hospitalisation [Unknown]
  - Product dose omission [Unknown]
  - Nasopharyngitis [Unknown]
